FAERS Safety Report 6882573-2 (Version None)
Quarter: 2010Q3

REPORT INFORMATION
  Report Type: 
  Country: None (occurrence: None)
  Receive Date: 20100727
  Receipt Date: 20100719
  Transmission Date: 20110219
  Serious: Yes (Other)
  Sender: FDA-Public Use
  Company Number: RB-10738-2010

PATIENT
  Sex: Female

DRUGS (3)
  1. SUBOXONE [Suspect]
     Indication: DRUG DEPENDENCE
     Dosage: (8 MG QID SUBLINGUAL), (TAPERING DOSES SUBLINGUAL), (12 MG SUBLINGUAL)
     Route: 060
     Dates: end: 20070101
  2. LAMICTAL [Concomitant]
  3. NEURONTIN [Concomitant]

REACTIONS (7)
  - BALANCE DISORDER [None]
  - CEREBRAL HAEMORRHAGE [None]
  - DECREASED INTEREST [None]
  - DIZZINESS [None]
  - ELECTROENCEPHALOGRAM ABNORMAL [None]
  - PSYCHIATRIC SYMPTOM [None]
  - SELF ESTEEM DECREASED [None]
